FAERS Safety Report 5912285-0 (Version None)
Quarter: 2008Q4

REPORT INFORMATION
  Report Type: 
  Country: None (occurrence: None)
  Receive Date: 20081008
  Receipt Date: 20081002
  Transmission Date: 20090506
  Serious: Yes (Hospitalization)
  Sender: FDA-Public Use
  Company Number: GB-TEVA-178300ISR

PATIENT
  Age: 78 Year
  Sex: Female

DRUGS (13)
  1. FUROSEMIDE [Suspect]
     Indication: DIURETIC THERAPY
  2. BUMETANIDE [Suspect]
     Indication: DIURETIC THERAPY
  3. ACETYLSALICYLIC ACID SRT [Concomitant]
  4. ATORVASTATIN [Concomitant]
  5. ACETAMINOPHEN W/ CODEINE [Concomitant]
  6. GABAPENTIN [Concomitant]
  7. NITROGLYCERIN [Concomitant]
  8. HYOSCINE HBR HYT [Concomitant]
  9. IPRATROPIUM BROMIDE [Concomitant]
  10. LOSARTAN [Concomitant]
  11. OMEPRAZOLE [Concomitant]
  12. SALMETEROL [Concomitant]
  13. SPIRONOLACTONE [Concomitant]
     Indication: DIURETIC THERAPY

REACTIONS (10)
  - AGITATION [None]
  - CHRONIC OBSTRUCTIVE PULMONARY DISEASE [None]
  - DIARRHOEA [None]
  - HALLUCINATION [None]
  - HYPOCALCAEMIA [None]
  - HYPOKALAEMIA [None]
  - HYPOMAGNESAEMIA [None]
  - HYPOPHOSPHATAEMIA [None]
  - MUSCLE DISORDER [None]
  - VOMITING [None]
